FAERS Safety Report 8947352 (Version 1)
Quarter: 2012Q4

REPORT INFORMATION
  Report Type: Report from Study
  Country: CA (occurrence: CA)
  Receive Date: 20121205
  Receipt Date: 20121205
  Transmission Date: 20130627
  Serious: Yes (Other)
  Sender: FDA-Public Use
  Company Number: CA-JNJFOC-20121113882

PATIENT
  Sex: Female
  Weight: 83.46 kg

DRUGS (1)
  1. REMICADE [Suspect]
     Indication: PSORIASIS
     Route: 042
     Dates: start: 2010

REACTIONS (3)
  - Haemochromatosis [Unknown]
  - Hypotension [Not Recovered/Not Resolved]
  - Feeling abnormal [Unknown]
